FAERS Safety Report 14221066 (Version 2)
Quarter: 2017Q4

REPORT INFORMATION
  Report Type: Spontaneous
  Country: AU (occurrence: AU)
  Receive Date: 20171124
  Receipt Date: 20171211
  Transmission Date: 20180321
  Serious: Yes (Other)
  Sender: FDA-Public Use
  Company Number: PHHY2017AU168694

PATIENT
  Sex: Male

DRUGS (2)
  1. DASATINIB. [Concomitant]
     Active Substance: DASATINIB
     Indication: ACUTE LYMPHOCYTIC LEUKAEMIA
     Dosage: UNK
     Route: 065
  2. GLIVEC [Suspect]
     Active Substance: IMATINIB MESYLATE
     Indication: ACUTE LYMPHOCYTIC LEUKAEMIA
     Dosage: UNK
     Route: 065

REACTIONS (3)
  - Acute lymphocytic leukaemia [Unknown]
  - Recurrent cancer [Unknown]
  - Electrocardiogram QT interval abnormal [Unknown]
